FAERS Safety Report 10246936 (Version 1)
Quarter: 2014Q2

REPORT INFORMATION
  Report Type: Spontaneous
  Country: US (occurrence: None)
  Receive Date: 20140617
  Receipt Date: 20140617
  Transmission Date: 20141212
  Serious: Yes (Hospitalization)
  Sender: FDA-Public Use
  Company Number: None

PATIENT
  Age: 61 Year
  Sex: Female
  Weight: 65.3 kg

DRUGS (3)
  1. CYCLOPHOSPHAMIDE [Suspect]
     Dosage: 1038 MG CYCLE 1
  2. PENTOSTATIN [Suspect]
  3. RITUXIMAB (MOAB C2B8 ANTI CD20, CHIMERIC) [Suspect]

REACTIONS (2)
  - Body temperature increased [None]
  - Chills [None]
